FAERS Safety Report 25944997 (Version 1)
Quarter: 2025Q4

REPORT INFORMATION
  Report Type: Spontaneous
  Country: US (occurrence: US)
  Receive Date: 20251021
  Receipt Date: 20251021
  Transmission Date: 20260117
  Serious: No
  Sender: Phathom Pharmaceuticals
  Company Number: US-PHATHOM PHARMACEUTICALS INC.-2025PHT01952

PATIENT
  Age: 74 Year
  Sex: Female
  Weight: 57.2 kg

DRUGS (1)
  1. VOQUEZNA [Suspect]
     Active Substance: VONOPRAZAN FUMARATE
     Dosage: 10 MG, 1X/DAY
     Route: 048
     Dates: end: 20250716

REACTIONS (11)
  - Illness [Recovering/Resolving]
  - Body temperature fluctuation [Recovering/Resolving]
  - Skin reaction [Recovering/Resolving]
  - Gait disturbance [Recovering/Resolving]
  - Feeling drunk [Recovering/Resolving]
  - Nausea [Recovering/Resolving]
  - Defaecation urgency [Recovering/Resolving]
  - Diarrhoea [Recovering/Resolving]
  - Dizziness [Recovering/Resolving]
  - Vomiting [Recovering/Resolving]
  - Asthenia [Recovering/Resolving]

NARRATIVE: CASE EVENT DATE: 20250716
